FAERS Safety Report 9190259 (Version 1)
Quarter: 2013Q1

REPORT INFORMATION
  Report Type: Spontaneous
  Country: US (occurrence: None)
  Receive Date: 20130325
  Receipt Date: 20130325
  Transmission Date: 20140127
  Serious: Yes (Other)
  Sender: FDA-Public Use
  Company Number: None

PATIENT
  Age: 59 Year
  Sex: Female
  Weight: 112.95 kg

DRUGS (1)
  1. PACLITAXEL [Suspect]
     Indication: PERITONEAL CARCINOMA METASTATIC
     Route: 042
     Dates: start: 20130321

REACTIONS (3)
  - Cough [None]
  - Eye movement disorder [None]
  - Unresponsive to stimuli [None]
